FAERS Safety Report 6039887-8 (Version None)
Quarter: 2009Q1

REPORT INFORMATION
  Report Type: 
  Country: None (occurrence: None)
  Receive Date: 20090116
  Receipt Date: 20090107
  Transmission Date: 20090719
  Serious: Yes (Hospitalization)
  Sender: FDA-Public Use
  Company Number: US-BIOGENIDEC-2009BI000826

PATIENT
  Sex: Female

DRUGS (2)
  1. AVONEX [Suspect]
     Indication: MULTIPLE SCLEROSIS
     Route: 030
     Dates: start: 19990701, end: 20040115
  2. AVONEX [Suspect]
     Route: 030
     Dates: start: 20081104

REACTIONS (2)
  - DIPLOPIA [None]
  - MULTIPLE SCLEROSIS RELAPSE [None]
